FAERS Safety Report 6932102-X (Version None)
Quarter: 2010Q3

REPORT INFORMATION
  Report Type: 
  Country: None (occurrence: None)
  Receive Date: 20100819
  Receipt Date: 20100806
  Transmission Date: 20110219
  Serious: Yes (Death, Hospitalization)
  Sender: FDA-Public Use
  Company Number: A0862808A

PATIENT
  Age: 87 Year
  Sex: Female
  Weight: 88.6 kg

DRUGS (3)
  1. AVANDIA [Suspect]
     Indication: DIABETES MELLITUS
     Dosage: 8MGD PER DAY
     Route: 048
     Dates: end: 20061219
  2. LISINOPRIL [Concomitant]
  3. SYNTHROID [Concomitant]

REACTIONS (7)
  - ATRIAL FIBRILLATION [None]
  - BRADYCARDIA [None]
  - CARDIAC FAILURE CONGESTIVE [None]
  - CARDIAC VALVE DISEASE [None]
  - HYPOTENSION [None]
  - RENAL FAILURE [None]
  - RIGHT VENTRICULAR FAILURE [None]
